FAERS Safety Report 9244485 (Version 3)
Quarter: 2014Q1

REPORT INFORMATION
  Report Type: Spontaneous
  Country: DE (occurrence: DE)
  Receive Date: 20130422
  Receipt Date: 20140131
  Transmission Date: 20141002
  Serious: Yes (Hospitalization, Other)
  Sender: FDA-Public Use
  Company Number: DE-AMGEN-DEUSP2013027743

PATIENT
  Age: 70 Year
  Sex: Male

DRUGS (4)
  1. ENBREL [Suspect]
     Indication: RHEUMATOID ARTHRITIS
     Dosage: 50 MG, 2X/WEEK
     Route: 065
     Dates: start: 20120912
  2. ENBREL [Suspect]
     Dosage: 50 MG, 2 TIMES/WK
     Route: 065
     Dates: start: 201307, end: 201311
  3. PREDNISOLON                        /00016201/ [Concomitant]
     Dosage: 10 MG, 1X/DAY
  4. CORTISON [Concomitant]
     Dosage: UNK

REACTIONS (5)
  - Benign neoplasm [Unknown]
  - Arthropathy [Unknown]
  - Rheumatoid arthritis [Unknown]
  - Drug ineffective [Unknown]
  - Arthritis infective [Unknown]
